FAERS Safety Report 7729059-0 (Version None)
Quarter: 2011Q3

REPORT INFORMATION
  Report Type: 
  Country: None (occurrence: None)
  Receive Date: 20110817
  Receipt Date: 20110416
  Transmission Date: 20111222
  Serious: Yes (Other)
  Sender: FDA-Public Use
  Company Number: 201110429

PATIENT
  Sex: Male

DRUGS (1)
  1. LIORESAL [Suspect]
     Indication: MUSCLE SPASTICITY
     Dosage: MCG, DAILY, INTRATHECAL
     Route: 037

REACTIONS (6)
  - CARDIAC ARREST [None]
  - RESPIRATORY DISTRESS [None]
  - HOSPITALISATION [None]
  - MENTAL STATUS CHANGES [None]
  - RESPIRATORY ARREST [None]
  - RESPIRATORY DEPRESSION [None]
